FAERS Safety Report 9906938 (Version 2)
Quarter: 2014Q2

REPORT INFORMATION
  Report Type: Spontaneous
  Country: SE (occurrence: SE)
  Receive Date: 20140218
  Receipt Date: 20140604
  Transmission Date: 20141212
  Serious: Yes (Other)
  Sender: FDA-Public Use
  Company Number: SE-ACTAVIS-2014-02545

PATIENT
  Sex: Female

DRUGS (1)
  1. AMLODIPINE MESILATE ACTAVIS [Suspect]
     Indication: HYPERTENSION
     Dosage: UNK
     Route: 065

REACTIONS (7)
  - Dyspnoea [Unknown]
  - Blood pressure increased [Unknown]
  - Oedema [Unknown]
  - Migraine [Unknown]
  - Hyperhidrosis [Unknown]
  - Headache [Unknown]
  - Mental disorder [Unknown]
